FAERS Safety Report 7137567-9 (Version None)
Quarter: 2010Q4

REPORT INFORMATION
  Report Type: 
  Country: None (occurrence: None)
  Receive Date: 20101119
  Receipt Date: 20101026
  Transmission Date: 20110411
  Serious: Yes (Hospitalization)
  Sender: FDA-Public Use
  Company Number: 54973

PATIENT
  Age: 17 Month
  Sex: Male
  Weight: 13.6079 kg

DRUGS (1)
  1. TEETHING TABLETS [Suspect]
     Indication: TEETHING

REACTIONS (7)
  - FLUSHING [None]
  - GAIT DISTURBANCE [None]
  - LETHARGY [None]
  - MUSCLE TWITCHING [None]
  - NEUROLOGICAL SYMPTOM [None]
  - PALLOR [None]
  - VIRAL INFECTION [None]
